FAERS Safety Report 8552009-4 (Version None)
Quarter: 2012Q3

REPORT INFORMATION
  Report Type: 
  Country: None (occurrence: None)
  Receive Date: 20120730
  Receipt Date: 20120720
  Transmission Date: 20120928
  Serious: Yes (Death)
  Sender: FDA-Public Use
  Company Number: FR-SANOFI-AVENTIS-2012SA051632

PATIENT
  Age: 73 Year
  Sex: Female

DRUGS (6)
  1. NITROGLYCERIN [Suspect]
     Indication: ANGINA PECTORIS
     Route: 062
     Dates: end: 20120510
  2. DIGOXIN [Suspect]
     Indication: ATRIAL FIBRILLATION
     Route: 048
     Dates: end: 20120510
  3. LASIX [Suspect]
     Route: 048
     Dates: end: 20120510
  4. PREVISCAN [Suspect]
     Indication: ATRIAL FIBRILLATION
     Dosage: TABLET= 20MG; DOSE: 0.5 TABLET ONE DAY, 0.75 TABLET THE OTHER DAY.
     Route: 048
     Dates: end: 20120510
  5. NEBIVOLOL [Suspect]
     Route: 048
     Dates: end: 20120510
  6. FUROSEMIDE [Suspect]
     Route: 048
     Dates: end: 20120510

REACTIONS (1)
  - SUBDURAL HAEMATOMA [None]
